FAERS Safety Report 8559002-6 (Version None)
Quarter: 2012Q3

REPORT INFORMATION
  Report Type: 
  Country: None (occurrence: None)
  Receive Date: 20120802
  Receipt Date: 20120724
  Transmission Date: 20120928
  Serious: Yes (Hospitalization)
  Sender: FDA-Public Use
  Company Number: US-BIOGENIDEC-2012BI027109

PATIENT
  Age: 32 Year
  Sex: Male

DRUGS (1)
  1. TYSABRI [Suspect]
     Indication: MULTIPLE SCLEROSIS
     Route: 042
     Dates: start: 20120626

REACTIONS (7)
  - BLINDNESS UNILATERAL [None]
  - PAIN [None]
  - VIITH NERVE PARALYSIS [None]
  - EYE PAIN [None]
  - SPEECH DISORDER [None]
  - HEADACHE [None]
  - CONFUSIONAL STATE [None]
